FAERS Safety Report 13829840 (Version 8)
Quarter: 2021Q2

REPORT INFORMATION
  Report Type: Report from Study
  Country: CO (occurrence: CO)
  Receive Date: 20170803
  Receipt Date: 20210527
  Transmission Date: 20210716
  Serious: Yes (Hospitalization, Other)
  Sender: FDA-Public Use
  Company Number: PHHY2017CO103903

PATIENT
  Sex: Female
  Weight: 78 kg

DRUGS (8)
  1. SANDOSTATIN LAR DEPOT [Suspect]
     Active Substance: OCTREOTIDE ACETATE
     Dosage: 20 MG, EVERY 45 DAYS) (EVERY MONTH AND A HALF)
     Route: 030
  2. AMITRIPTYLINE [Concomitant]
     Active Substance: AMITRIPTYLINE
     Indication: PRODUCT USED FOR UNKNOWN INDICATION
     Dosage: UNK
     Route: 065
  3. SANDOSTATIN LAR DEPOT [Suspect]
     Active Substance: OCTREOTIDE ACETATE
     Indication: ACROMEGALY
     Dosage: 20 MG, QMO (ONCE A MONTH)
     Route: 030
     Dates: start: 20160406
  4. SANDOSTATIN LAR DEPOT [Suspect]
     Active Substance: OCTREOTIDE ACETATE
     Dosage: UNK, Q2MO (AMPOULE)
     Route: 030
  5. SANDOSTATIN LAR DEPOT [Suspect]
     Active Substance: OCTREOTIDE ACETATE
     Dosage: UNK (EVERY MONTH AND A HALF)
     Route: 030
  6. FUROSEMIDE. [Concomitant]
     Active Substance: FUROSEMIDE
     Indication: PRODUCT USED FOR UNKNOWN INDICATION
     Dosage: UNK
     Route: 065
  7. LOSARTAN. [Suspect]
     Active Substance: LOSARTAN
     Indication: PRODUCT USED FOR UNKNOWN INDICATION
     Dosage: 40 MG, TID
     Route: 065
  8. AMLODIPINE [Suspect]
     Active Substance: AMLODIPINE BESYLATE
     Indication: HYPERTENSION
     Dosage: 5 MG, TID
     Route: 065

REACTIONS (26)
  - Disease progression [Unknown]
  - Pyrexia [Unknown]
  - Illness [Unknown]
  - Swelling face [Unknown]
  - Dysphonia [Unknown]
  - Tongue disorder [Unknown]
  - Endocrine disorder [Unknown]
  - Depressed mood [Unknown]
  - Fatigue [Unknown]
  - Lip disorder [Unknown]
  - Injection site pain [Unknown]
  - Treatment failure [Unknown]
  - Peripheral swelling [Unknown]
  - Influenza [Unknown]
  - Feeling abnormal [Unknown]
  - Swelling [Unknown]
  - Asthenia [Unknown]
  - Syringe issue [Unknown]
  - Cataract [Recovered/Resolved]
  - Aphonia [Unknown]
  - Oedema peripheral [Unknown]
  - Disorientation [Unknown]
  - Inappropriate schedule of product administration [Unknown]
  - Cough [Unknown]
  - Acromegaly [Unknown]
  - Product dose omission issue [Unknown]
